FAERS Safety Report 8823315 (Version 1)
Quarter: 2012Q4

REPORT INFORMATION
  Report Type: 
  Country: US (occurrence: US)
  Receive Date: 20121003
  Receipt Date: 20121003
  Transmission Date: 20130627
  Serious: No
  Sender: FDA-Public Use
  Company Number: US-BAYER-2012-103107

PATIENT
  Sex: Female

DRUGS (6)
  1. YASMIN [Suspect]
     Indication: ACNE
     Route: 048
  2. YASMIN [Suspect]
     Indication: CONTRACEPTION
  3. OCELLA [Suspect]
     Indication: ACNE
     Route: 048
  4. OCELLA [Suspect]
     Indication: CONTRACEPTION
  5. SYEDA [Concomitant]
     Indication: ACNE
     Route: 048
  6. SYEDA [Concomitant]
     Indication: CONTRACEPTION

REACTIONS (3)
  - Headache [None]
  - Alopecia [None]
  - Ovarian cyst [None]
